FAERS Safety Report 4304830-6 (Version None)
Quarter: 2004Q1

REPORT INFORMATION
  Report Type: 
  Country: None (occurrence: None)
  Receive Date: 20040225
  Receipt Date: 20040225
  Transmission Date: 20041129
  Serious: Yes (Other)
  Sender: FDA-Public Use
  Company Number: None

PATIENT
  Age: 70 Year
  Sex: Female
  Weight: 69.8539 kg

DRUGS (12)
  1. AVELOX [Suspect]
     Indication: PNEUMONIA
     Dosage: ORAL
     Route: 048
     Dates: start: 20040129
  2. LIPITOR [Concomitant]
  3. NORVASC [Concomitant]
  4. ATENOLOL [Concomitant]
  5. THEOPYLLINE [Concomitant]
  6. PAXIL [Concomitant]
  7. FUROSOMIDE [Concomitant]
  8. ASPIRIN [Concomitant]
  9. NITROSTAT [Concomitant]
  10. COMBIVENT [Concomitant]
  11. ADAVAIR [Concomitant]
  12. ALBUTEROL [Concomitant]

REACTIONS (2)
  - DIZZINESS [None]
  - TREMOR [None]
